FAERS Safety Report 25699253 (Version 2)
Quarter: 2025Q4

REPORT INFORMATION
  Report Type: Spontaneous
  Country: IN (occurrence: IN)
  Receive Date: 20250819
  Receipt Date: 20251230
  Transmission Date: 20260117
  Serious: Yes (Death, Life-Threatening, Hospitalization, Other)
  Sender: CIPLA
  Company Number: IN-MLMSERVICE-20250805-PI596717-00232-2

PATIENT

DRUGS (7)
  1. TACROLIMUS [Suspect]
     Active Substance: TACROLIMUS
     Indication: Immunosuppressant drug therapy
     Dosage: 1.5 MILLIGRAM, BID (12 HOURS)
     Route: 065
  2. TACROLIMUS [Suspect]
     Active Substance: TACROLIMUS
     Dosage: 1.25 MILLIGRAM, BID (12 HOURS)
     Route: 065
  3. MYCOPHENOLATE MOFETIL [Suspect]
     Active Substance: MYCOPHENOLATE MOFETIL
     Indication: Immunosuppressant drug therapy
     Dosage: UNK
     Route: 065
  4. VALGANCICLOVIR [Suspect]
     Active Substance: VALGANCICLOVIR
     Indication: Product used for unknown indication
     Dosage: UNK
     Route: 065
  5. PREDNISOLONE [Suspect]
     Active Substance: PREDNISOLONE
     Indication: Immunosuppressant drug therapy
     Dosage: UNK
     Route: 065
  6. METHYLPREDNISOLONE [Suspect]
     Active Substance: METHYLPREDNISOLONE
     Indication: Blood creatinine abnormal
     Dosage: 250 MILLIGRAM, TOTAL INTERVAL 1, PULSED WITH ONE DOSE OF METHYLPREDNISOLONE 250 MG
     Route: 065
  7. METHYLPREDNISOLONE [Suspect]
     Active Substance: METHYLPREDNISOLONE
     Dosage: PULSED WITH METHYLPREDNISOLONE FOR 3 DAYS.
     Route: 065

REACTIONS (16)
  - Pseudomonas infection [Fatal]
  - Interstitial lung disease [Fatal]
  - Urinary tract infection [Fatal]
  - Pyelonephritis [Fatal]
  - Hydronephrosis [Fatal]
  - Metabolic acidosis [Fatal]
  - Transplant rejection [Fatal]
  - Septic shock [Fatal]
  - Renal cyst infection [Fatal]
  - Renal tubular necrosis [Fatal]
  - Pancytopenia [Fatal]
  - Cardiac failure chronic [Fatal]
  - Cytopenia [Unknown]
  - Enterococcal infection [Unknown]
  - Leukopenia [Unknown]
  - Cough [Unknown]
